FAERS Safety Report 14744857 (Version 1)
Quarter: 2018Q2

REPORT INFORMATION
  Report Type: Spontaneous
  Country: FR (occurrence: FR)
  Receive Date: 20180411
  Receipt Date: 20180411
  Transmission Date: 20180711
  Serious: Yes (Other)
  Sender: FDA-Public Use
  Company Number: FR-MERCK KGAA-2045543

PATIENT
  Age: 51 Year
  Sex: Female
  Weight: 49 kg

DRUGS (1)
  1. NOVOTHYROX [Suspect]
     Active Substance: LEVOTHYROXINE SODIUM
     Indication: THYROIDECTOMY
     Route: 048
     Dates: start: 20170501, end: 20170928

REACTIONS (9)
  - Chest pain [Unknown]
  - Impaired work ability [Recovered/Resolved]
  - Palpitations [Unknown]
  - Insomnia [Unknown]
  - Speech disorder [Unknown]
  - Memory impairment [Unknown]
  - Feeling jittery [Unknown]
  - Headache [Unknown]
  - Disturbance in attention [Unknown]

NARRATIVE: CASE EVENT DATE: 201707
